FAERS Safety Report 18397153 (Version 3)
Quarter: 2021Q1

REPORT INFORMATION
  Report Type: Report from Study
  Country: None (occurrence: US)
  Receive Date: 20201019
  Receipt Date: 20210118
  Transmission Date: 20210419
  Serious: Yes (Hospitalization, Other)
  Sender: FDA-Public Use
  Company Number: US-ABBVIE-20K-163-3613705-00

PATIENT
  Age: 70 Year
  Sex: Female
  Weight: 66.74 kg

DRUGS (10)
  1. LASIX [Concomitant]
     Active Substance: FUROSEMIDE
     Indication: OEDEMA PERIPHERAL
  2. EFFEXOR [Concomitant]
     Active Substance: VENLAFAXINE HYDROCHLORIDE
     Indication: DEPRESSION
  3. ALPRAZOLAM. [Concomitant]
     Active Substance: ALPRAZOLAM
     Indication: ANXIETY
  4. HUMIRA [Suspect]
     Active Substance: ADALIMUMAB
     Indication: COLITIS ULCERATIVE
     Dosage: CITRATE FREE
     Route: 058
     Dates: start: 201909
  5. TYLENOL [Concomitant]
     Active Substance: ACETAMINOPHEN
     Indication: PAIN
  6. HUMIRA [Suspect]
     Active Substance: ADALIMUMAB
     Dosage: CITRATE FREE
     Route: 058
     Dates: start: 202004
  7. LIPITOR [Concomitant]
     Active Substance: ATORVASTATIN CALCIUM
     Indication: BLOOD CHOLESTEROL
  8. POTASSIUM [Concomitant]
     Active Substance: POTASSIUM
     Indication: BLOOD DISORDER
  9. MAGNESIUM [Concomitant]
     Active Substance: MAGNESIUM
     Indication: BLOOD DISORDER
  10. IRON [Concomitant]
     Active Substance: IRON
     Indication: ANAEMIA

REACTIONS (16)
  - Oedema peripheral [Not Recovered/Not Resolved]
  - Dyspnoea [Recovered/Resolved]
  - Psychiatric symptom [Unknown]
  - Nasopharyngitis [Recovered/Resolved]
  - Gait inability [Not Recovered/Not Resolved]
  - Cardiac failure congestive [Not Recovered/Not Resolved]
  - Hypotension [Recovering/Resolving]
  - Malnutrition [Not Recovered/Not Resolved]
  - Anxiety [Unknown]
  - Muscular weakness [Recovered/Resolved]
  - Wheelchair user [Not Recovered/Not Resolved]
  - Colitis ulcerative [Recovered/Resolved]
  - Gastrointestinal disorder [Not Recovered/Not Resolved]
  - Colitis ulcerative [Not Recovered/Not Resolved]
  - Gastrointestinal haemorrhage [Recovered/Resolved]
  - Stress [Unknown]

NARRATIVE: CASE EVENT DATE: 2019
